FAERS Safety Report 6919741-7 (Version None)
Quarter: 2010Q3

REPORT INFORMATION
  Report Type: 
  Country: None (occurrence: None)
  Receive Date: 20100810
  Receipt Date: 20100810
  Transmission Date: 20110219
  Serious: Yes (Hospitalization)
  Sender: FDA-Public Use
  Company Number: None

PATIENT
  Age: 72 Year
  Sex: Female
  Weight: 82 kg

DRUGS (13)
  1. ITRACONAZOLE [Suspect]
     Indication: BRONCHOPULMONARY ASPERGILLOSIS ALLERGIC
     Dosage: 400MG TWICE DAILY ORAL
     Route: 048
     Dates: start: 20100601
  2. DILTIAZEM [Concomitant]
  3. FUROSEMIDE [Concomitant]
  4. POTASSIUM CHLORIDE [Concomitant]
  5. SULFAMETHOXAZOLE AND TRIMETHOPRIM [Concomitant]
  6. ALLOPURINOL [Concomitant]
  7. ASPIRIN [Concomitant]
  8. CA W/D [Concomitant]
  9. CAPTOPRIL [Concomitant]
  10. MONTELUKAST [Concomitant]
  11. GUAIFENESIN [Concomitant]
  12. PREDNISONE [Concomitant]
  13. SPIRIVA [Concomitant]

REACTIONS (4)
  - CARDIAC FAILURE CONGESTIVE [None]
  - HEADACHE [None]
  - PALPITATIONS [None]
  - PULMONARY OEDEMA [None]
